FAERS Safety Report 4651278-0 (Version None)
Quarter: 2005Q2

REPORT INFORMATION
  Report Type: 
  Country: None (occurrence: None)
  Receive Date: 20050404
  Receipt Date: 20041202
  Transmission Date: 20051028
  Serious: Yes (Hospitalization)
  Sender: FDA-Public Use
  Company Number: USA041285233

PATIENT
  Sex: Female

DRUGS (2)
  1. CYMBALTA [Suspect]
  2. TRAZODONE [Concomitant]

REACTIONS (2)
  - ABNORMAL BEHAVIOUR [None]
  - SUICIDE ATTEMPT [None]
